FAERS Safety Report 12650985 (Version 1)
Quarter: 2016Q3

REPORT INFORMATION
  Report Type: Spontaneous
  Country: US (occurrence: US)
  Receive Date: 20160815
  Receipt Date: 20160815
  Transmission Date: 20161109
  Serious: No
  Sender: FDA-Public Use
  Company Number: US-JAZZ-2016-US-005224

PATIENT
  Age: 51 Year
  Sex: Female
  Weight: 91.61 kg

DRUGS (39)
  1. XYREM [Suspect]
     Active Substance: SODIUM OXYBATE
     Indication: SOMNOLENCE
     Dosage: DOSAGE ADJUSTMENTS
     Route: 048
  2. XYREM [Suspect]
     Active Substance: SODIUM OXYBATE
     Dosage: 1.5 G, BID
     Route: 048
     Dates: start: 201312, end: 2014
  3. VITAMIN B COMPLEX [Concomitant]
     Active Substance: CYANOCOBALAMIN\DEXPANTHENOL\NIACINAMIDE\PYRIDOXINE HYDROCHLORIDE\RIBOFLAVIN 5^-PHOSPHATE SODIUM\THIAMINE HYDROCHLORIDE\VITAMIN B COMPLEX
  4. EXCEDRIN MIGRAINE [Concomitant]
     Active Substance: ACETAMINOPHEN\ASPIRIN\CAFFEINE
  5. KLOR-CON [Concomitant]
     Active Substance: POTASSIUM CHLORIDE
  6. HYDROCHLOROTHIAZIDE. [Concomitant]
     Active Substance: HYDROCHLOROTHIAZIDE
  7. SUMATRIPTAN SUCCINATE. [Concomitant]
     Active Substance: SUMATRIPTAN SUCCINATE
  8. VENLAFAXINE [Concomitant]
     Active Substance: VENLAFAXINE HYDROCHLORIDE
  9. IBUPROFEN. [Concomitant]
     Active Substance: IBUPROFEN
  10. SPIRONOLACTONE. [Concomitant]
     Active Substance: SPIRONOLACTONE
  11. XYREM [Suspect]
     Active Substance: SODIUM OXYBATE
     Dosage: 4.5 G, BID
     Route: 048
     Dates: start: 201105, end: 2011
  12. XYREM [Suspect]
     Active Substance: SODIUM OXYBATE
     Dosage: DOSAGE ADJUSTMENTS
     Route: 048
  13. XYREM [Suspect]
     Active Substance: SODIUM OXYBATE
     Dosage: 1.5 G, BID
     Route: 048
     Dates: start: 201512, end: 2015
  14. DICYCLOMINE [Concomitant]
     Active Substance: DICYCLOMINE HYDROCHLORIDE
  15. XELJANZ [Concomitant]
     Active Substance: TOFACITINIB CITRATE
  16. FUROSEMIDE. [Concomitant]
     Active Substance: FUROSEMIDE
  17. TERBINAFINE. [Concomitant]
     Active Substance: TERBINAFINE
  18. XYREM [Suspect]
     Active Substance: SODIUM OXYBATE
     Dosage: 4.5 G, BID
     Route: 048
     Dates: start: 201402, end: 2014
  19. ARNICA FLOWER TINCTURE [Concomitant]
  20. ARMOUR THYROID [Concomitant]
     Active Substance: THYROID, PORCINE
  21. MINOCYCLINE HCL [Concomitant]
     Active Substance: MINOCYCLINE HYDROCHLORIDE
  22. NUVIGIL [Concomitant]
     Active Substance: ARMODAFINIL
  23. XYREM [Suspect]
     Active Substance: SODIUM OXYBATE
     Indication: NARCOLEPSY
     Dosage: 1.5 G, BID
     Route: 048
     Dates: start: 201010, end: 2010
  24. XYREM [Suspect]
     Active Substance: SODIUM OXYBATE
     Dosage: 4.5 G, BID
     Route: 048
     Dates: start: 201601
  25. OMEPRAZOLE. [Concomitant]
     Active Substance: OMEPRAZOLE
  26. ENALAPRIL MALEATE. [Concomitant]
     Active Substance: ENALAPRIL MALEATE
  27. DIOVAN [Concomitant]
     Active Substance: VALSARTAN
  28. LATISSE [Concomitant]
     Active Substance: BIMATOPROST
  29. CALCIUM W/VITAMIN D [Concomitant]
     Active Substance: CALCIUM\VITAMIN D
  30. ABILIFY [Concomitant]
     Active Substance: ARIPIPRAZOLE
  31. ESTRADIOL. [Concomitant]
     Active Substance: ESTRADIOL
  32. FLUTICASONE PROPIONATE. [Concomitant]
     Active Substance: FLUTICASONE PROPIONATE
  33. XYREM [Suspect]
     Active Substance: SODIUM OXYBATE
     Dosage: DOSAGE ADJUSTEMENTS
  34. CLONAZEPAM. [Concomitant]
     Active Substance: CLONAZEPAM
  35. MULTIVITAMIN WITH FISH OIL AND LUTEIN [Concomitant]
  36. EEMT [Concomitant]
     Active Substance: ESTROGENS, ESTERIFIED\METHYLTESTOSTERONE
  37. LORAZEPAM. [Concomitant]
     Active Substance: LORAZEPAM
  38. MAXALT [Concomitant]
     Active Substance: RIZATRIPTAN BENZOATE
  39. NAPROXEN. [Concomitant]
     Active Substance: NAPROXEN

REACTIONS (11)
  - Abasia [Unknown]
  - Speech disorder [Unknown]
  - Unevaluable event [Unknown]
  - Back disorder [Unknown]
  - Joint swelling [Unknown]
  - Overdose [Unknown]
  - Somnambulism [Unknown]
  - Fall [Recovered/Resolved]
  - Unevaluable event [Unknown]
  - Stress [Unknown]
  - Joint injury [Unknown]

NARRATIVE: CASE EVENT DATE: 20160315
